FAERS Safety Report 6098183-3 (Version None)
Quarter: 2009Q1

REPORT INFORMATION
  Report Type: 
  Country: None (occurrence: None)
  Receive Date: 20090227
  Receipt Date: 20090218
  Transmission Date: 20090719
  Serious: Yes (Hospitalization, Disabling)
  Sender: FDA-Public Use
  Company Number: GB-BAUSCH-2009BL000702

PATIENT
  Age: 74 Year
  Sex: Female
  Weight: 66 kg

DRUGS (15)
  1. GENTAMICIN [Suspect]
     Indication: OSTEOMYELITIS
     Route: 042
     Dates: start: 20070919, end: 20071010
  2. CEFTAZIDIME [Suspect]
     Indication: OSTEOMYELITIS
     Route: 048
     Dates: start: 20071010, end: 20071107
  3. ADALAT [Concomitant]
     Indication: DRUG USE FOR UNKNOWN INDICATION
  4. AMITRIPTYLINE [Concomitant]
     Indication: DRUG USE FOR UNKNOWN INDICATION
  5. CALCICHEW-D3 [Concomitant]
     Indication: DRUG USE FOR UNKNOWN INDICATION
  6. CIPROFLOXACIN [Concomitant]
     Indication: ARTERIAL DISORDER
     Dates: start: 20070620, end: 20070711
  7. CLOPIDOGREL [Concomitant]
     Indication: DRUG USE FOR UNKNOWN INDICATION
  8. ETODOLAC [Concomitant]
     Indication: DRUG USE FOR UNKNOWN INDICATION
  9. FLUCLOXACILLIN [Concomitant]
     Indication: ARTERIAL DISORDER
     Route: 048
     Dates: start: 20070620, end: 20070711
  10. LEVOTHYROXINE SODIUM [Concomitant]
     Indication: DRUG USE FOR UNKNOWN INDICATION
  11. NAFTIDROFURYL OXALATE [Concomitant]
     Indication: DRUG USE FOR UNKNOWN INDICATION
  12. OMEPRAZOLE [Concomitant]
     Indication: DRUG USE FOR UNKNOWN INDICATION
  13. RALOXIFENE HCL [Concomitant]
     Indication: DRUG USE FOR UNKNOWN INDICATION
  14. SIMVASTATIN [Concomitant]
     Indication: DRUG USE FOR UNKNOWN INDICATION
  15. ASCORBIC ACID [Concomitant]
     Indication: VITAMIN SUPPLEMENTATION

REACTIONS (3)
  - INAPPROPRIATE SCHEDULE OF DRUG ADMINISTRATION [None]
  - MALAISE [None]
  - OTOTOXICITY [None]
